FAERS Safety Report 7648009-9 (Version None)
Quarter: 2011Q3

REPORT INFORMATION
  Report Type: 
  Country: None (occurrence: None)
  Receive Date: 20110801
  Receipt Date: 20110722
  Transmission Date: 20111222
  Serious: Yes (Hospitalization, Other)
  Sender: FDA-Public Use
  Company Number: CH-JNJFOC-20110708320

PATIENT
  Age: 43 Year
  Sex: Male

DRUGS (16)
  1. CALCIMAGON D3 [Concomitant]
     Route: 048
  2. EFFEXOR XR [Suspect]
     Indication: PRODUCT USED FOR UNKNOWN INDICATION
     Route: 048
  3. PANTOPRAZOLE [Concomitant]
     Route: 042
  4. LEVOTHYROXINE SODIUM [Concomitant]
     Route: 048
  5. ACETAMINOPHEN [Concomitant]
     Route: 048
  6. HALDOL [Suspect]
     Indication: PRODUCT USED FOR UNKNOWN INDICATION
     Route: 065
  7. POTASSIUM CHLORIDE [Concomitant]
     Route: 048
  8. TOPAMAX [Suspect]
     Indication: PRODUCT USED FOR UNKNOWN INDICATION
     Route: 048
  9. ATORVASTATIN [Concomitant]
     Route: 048
  10. FOSAMAX [Concomitant]
     Route: 048
  11. LEVEMIR [Concomitant]
     Route: 058
  12. RITALIN [Suspect]
     Indication: PRODUCT USED FOR UNKNOWN INDICATION
     Route: 048
     Dates: end: 20110524
  13. NOVORAPID [Concomitant]
     Route: 058
  14. MORPHINE [Suspect]
     Indication: PRODUCT USED FOR UNKNOWN INDICATION
     Route: 065
  15. MINIRIN [Concomitant]
     Route: 045
  16. HYDROCORTISONE [Concomitant]
     Route: 048

REACTIONS (12)
  - PYREXIA [None]
  - NEUROLEPTIC MALIGNANT SYNDROME [None]
  - CHILLS [None]
  - ASPARTATE AMINOTRANSFERASE INCREASED [None]
  - MUSCULOSKELETAL PAIN [None]
  - AGGRESSION [None]
  - BLOOD CREATINE PHOSPHOKINASE INCREASED [None]
  - CONFUSIONAL STATE [None]
  - ALANINE AMINOTRANSFERASE INCREASED [None]
  - DISTURBANCE IN ATTENTION [None]
  - DIARRHOEA [None]
  - TACHYCARDIA [None]
